FAERS Safety Report 10348709 (Version 2)
Quarter: 2014Q3

REPORT INFORMATION
  Report Type: Report from Study
  Country: BR (occurrence: BR)
  Receive Date: 20140729
  Receipt Date: 20140820
  Transmission Date: 20150326
  Serious: Yes (Other)
  Sender: FDA-Public Use
  Company Number: PHHY2014BR088769

PATIENT
  Sex: Female
  Weight: 88 kg

DRUGS (8)
  1. METICORTEN [Concomitant]
     Active Substance: PREDNISONE
     Indication: MULTIPLE SCLEROSIS
     Dosage: 1 DF, DAILY
     Route: 048
  2. CERAZETTE [Concomitant]
     Active Substance: DESOGESTREL
     Indication: MENSTRUAL DISORDER
     Dosage: 1 DF, DAILY
     Route: 048
  3. TEGRETOL [Suspect]
     Active Substance: CARBAMAZEPINE
     Indication: CONVULSION
     Dosage: 1 DF, DAILY
     Route: 048
     Dates: start: 1980
  4. CARBAMAZEPINE. [Suspect]
     Active Substance: CARBAMAZEPINE
     Indication: INTERVERTEBRAL DISC PROTRUSION
     Dosage: UNK UKN, UNK
  5. TEGRETOL-XR [Suspect]
     Active Substance: CARBAMAZEPINE
     Indication: EPILEPSY
     Dosage: 1 DF (400 MG), DAILY
     Route: 048
     Dates: start: 1983
  6. TEGRETOL-XR [Suspect]
     Active Substance: CARBAMAZEPINE
     Indication: INTERVERTEBRAL DISC PROTRUSION
  7. OMEPRAZOLE. [Concomitant]
     Active Substance: OMEPRAZOLE
     Indication: GASTRITIS
     Dosage: 2 DF, DAILY (ONE OR TWO DF, DAILY)
     Route: 048
  8. TEGRETOL-XR [Suspect]
     Active Substance: CARBAMAZEPINE
     Indication: SYNCOPE

REACTIONS (21)
  - Multiple sclerosis [Unknown]
  - Visual impairment [Not Recovered/Not Resolved]
  - Pain in extremity [Unknown]
  - Hernia [Not Recovered/Not Resolved]
  - Syncope [Unknown]
  - General physical health deterioration [Unknown]
  - Wrong technique in drug usage process [Unknown]
  - Quadriplegia [Recovered/Resolved]
  - Hepatic steatosis [Not Recovered/Not Resolved]
  - Memory impairment [Unknown]
  - Nausea [Recovered/Resolved]
  - Emphysema [Recovered/Resolved]
  - Immunodeficiency [Not Recovered/Not Resolved]
  - Menstrual disorder [Unknown]
  - Glaucoma [Not Recovered/Not Resolved]
  - Vision blurred [Not Recovered/Not Resolved]
  - Sciatic nerve neuropathy [Not Recovered/Not Resolved]
  - Thrombophlebitis [Recovered/Resolved]
  - Gastritis [Unknown]
  - Pain [Not Recovered/Not Resolved]
  - Haemorrhage [Unknown]

NARRATIVE: CASE EVENT DATE: 1988
